FAERS Safety Report 6213158-9 (Version None)
Quarter: 2009Q2

REPORT INFORMATION
  Report Type: 
  Country: None (occurrence: None)
  Receive Date: 20090603
  Receipt Date: 20090522
  Transmission Date: 20091009
  Serious: Yes (Hospitalization, Other)
  Sender: FDA-Public Use
  Company Number: ES-CELGENEUS-144-21880-09051649

PATIENT
  Sex: Male

DRUGS (6)
  1. REVLIMID [Suspect]
     Indication: MULTIPLE MYELOMA
     Route: 048
     Dates: start: 20081212, end: 20081219
  2. REVLIMID [Suspect]
     Route: 048
     Dates: start: 20081219, end: 20090120
  3. REVLIMID [Suspect]
     Route: 048
     Dates: start: 20090203, end: 20090226
  4. REVLIMID [Suspect]
     Route: 048
     Dates: start: 20090226, end: 20090228
  5. NEUPOGEN [Concomitant]
     Indication: DRUG USE FOR UNKNOWN INDICATION
     Route: 065
  6. BORTEZOMIB [Concomitant]
     Indication: DRUG USE FOR UNKNOWN INDICATION
     Route: 065

REACTIONS (4)
  - APHONIA [None]
  - BLOOD POTASSIUM INCREASED [None]
  - CONSTIPATION [None]
  - THERAPEUTIC RESPONSE UNEXPECTED [None]
